FAERS Safety Report 4764334-3 (Version None)
Quarter: 2005Q3

REPORT INFORMATION
  Report Type: 
  Country: None (occurrence: None)
  Receive Date: 20050909
  Receipt Date: 20041206
  Transmission Date: 20060218
  Serious: Yes (Death, Other)
  Sender: FDA-Public Use
  Company Number: DK-RB-1165-2004

PATIENT
  Age: 19 Year
  Sex: Male
  Weight: 93 kg

DRUGS (4)
  1. BUPRENORPHINE HCL [Suspect]
     Dosage: UNKNOWN
     Route: 060
  2. QUETIAPINE FUMARATE [Suspect]
     Indication: PSYCHOTIC DISORDER
     Route: 048
     Dates: start: 20021011, end: 20030413
  3. CHLORPROTHIXENE HYDROCHLORIDE [Suspect]
     Indication: DRUG USE FOR UNKNOWN INDICATION
     Route: 048
     Dates: start: 20030107, end: 20030413
  4. CLONAZEPAM [Suspect]
     Indication: DRUG USE FOR UNKNOWN INDICATION
     Route: 048
     Dates: start: 20030107, end: 20030413

REACTIONS (4)
  - DEATH [None]
  - GINGIVAL BLEEDING [None]
  - PULMONARY HAEMORRHAGE [None]
  - SPLENOMEGALY [None]
